FAERS Safety Report 20518483 (Version 1)
Quarter: 2022Q1

REPORT INFORMATION
  Report Type: Spontaneous
  Country: US (occurrence: US)
  Receive Date: 20220225
  Receipt Date: 20220225
  Transmission Date: 20220423
  Serious: No
  Sender: FDA-Public Use
  Company Number: US-SA-SAC20220221001036

PATIENT
  Sex: Male

DRUGS (2)
  1. LOVENOX [Suspect]
     Active Substance: ENOXAPARIN SODIUM
     Dosage: UNK
  2. FONDAPARINUX [Concomitant]
     Active Substance: FONDAPARINUX
     Dosage: 50

REACTIONS (1)
  - Mass [Unknown]

NARRATIVE: CASE EVENT DATE: 20220211
